FAERS Safety Report 25936753 (Version 1)
Quarter: 2025Q4

REPORT INFORMATION
  Report Type: Spontaneous
  Country: GB (occurrence: GB)
  Receive Date: 20251017
  Receipt Date: 20251017
  Transmission Date: 20260118
  Serious: Yes (Other)
  Sender: PHARMOBEDIENT CONSULTING, LLC
  Company Number: GB-Pharmobedient-000334

PATIENT
  Age: 54 Year
  Sex: Female

DRUGS (2)
  1. OXALIPLATIN [Suspect]
     Active Substance: OXALIPLATIN
     Indication: Metastases to lung
     Dates: start: 201912
  2. CAPECITABINE [Concomitant]
     Active Substance: CAPECITABINE
     Indication: Metastases to lung
     Dates: start: 201912

REACTIONS (2)
  - Amaurosis fugax [Recovered/Resolved]
  - Neuropathy peripheral [Recovered/Resolved]
